FAERS Safety Report 11165988 (Version 6)
Quarter: 2015Q4

REPORT INFORMATION
  Report Type: Spontaneous
  Country: ES (occurrence: ES)
  Receive Date: 20150604
  Receipt Date: 20151113
  Transmission Date: 20160304
  Serious: Yes (Other)
  Sender: FDA-Public Use
  Company Number: ALCN2015ES003497

PATIENT
  Age: 65 Year
  Sex: Female

DRUGS (8)
  1. VANCOMYCIN [Suspect]
     Active Substance: VANCOMYCIN
     Indication: PREOPERATIVE CARE
     Dosage: UNK
  2. POVIDONE IODINE [Suspect]
     Active Substance: POVIDONE-IODINE
     Indication: CATARACT OPERATION
     Dosage: UNK
     Dates: start: 20150506, end: 20150506
  3. BSS [Suspect]
     Active Substance: CALCIUM CHLORIDE\MAGNESIUM CHLORIDE\POTASSIUM CHLORIDE\SODIUM ACETATE\SODIUM CHLORIDE\SODIUM CITRATE
     Indication: CATARACT OPERATION
     Dosage: UNK
     Route: 031
     Dates: start: 20150506, end: 20150506
  4. COLIRCUSI ANESTISICO [Suspect]
     Active Substance: NAPHAZOLINE HYDROCHLORIDE
     Dosage: UNK
     Route: 047
     Dates: start: 20150506, end: 20150506
  5. GENTAMICIN. [Suspect]
     Active Substance: GENTAMICIN
     Indication: PREOPERATIVE CARE
     Dosage: UNK
  6. PILOCARPINE HCL [Suspect]
     Active Substance: PILOCARPINE HYDROCHLORIDE
     Indication: CATARACT OPERATION
     Dosage: UNK
     Route: 047
     Dates: start: 20150506, end: 20150506
  7. VISCOAT 0.5 OPHTHALMIC VISCOELASTIC SUBSTANCE [Suspect]
     Active Substance: CHONDROITIN SULFATE A\HYALURONATE SODIUM
     Indication: CATARACT OPERATION
     Dosage: UNK
     Route: 031
     Dates: start: 20150506, end: 20150506
  8. PROVISC 0.85 OPHTHALMIC VISCOELASTIC SUBSTANCE 1% [Suspect]
     Active Substance: HYALURONATE SODIUM
     Indication: CATARACT OPERATION
     Dosage: UNK
     Route: 031
     Dates: start: 20150506, end: 20150506

REACTIONS (2)
  - Endophthalmitis [Recovering/Resolving]
  - Visual acuity reduced [Recovering/Resolving]

NARRATIVE: CASE EVENT DATE: 20150510
